FAERS Safety Report 19931987 (Version 1)
Quarter: 2021Q4

REPORT INFORMATION
  Report Type: Spontaneous
  Country: CN (occurrence: CN)
  Receive Date: 20211007
  Receipt Date: 20211007
  Transmission Date: 20220303
  Serious: Yes (Life-Threatening, Hospitalization, Other)
  Sender: FDA-Public Use
  Company Number: CN-BAXTER-2021BAX025981

PATIENT
  Age: 61 Year
  Sex: Male
  Weight: 47 kg

DRUGS (16)
  1. CYCLOPHOSPHAMIDE [Suspect]
     Active Substance: CYCLOPHOSPHAMIDE
     Indication: Gastrointestinal lymphoma
     Dosage: CYCLOPHOSPHAMIDE FOR INJECTION (1G) + SODIUM CHLORIDE (60ML)
     Route: 042
     Dates: start: 20200829, end: 20200829
  2. CYCLOPHOSPHAMIDE [Suspect]
     Active Substance: CYCLOPHOSPHAMIDE
     Dosage: DOSE RE-INTRODUCED; CYCLOPHOSPHAMIDE + NS
     Route: 042
  3. SODIUM CHLORIDE [Suspect]
     Active Substance: SODIUM CHLORIDE
     Indication: Medication dilution
     Dosage: CYCLOPHOSPHAMIDE FOR INJECTION (1G) + SODIUM CHLORIDE (60ML)
     Route: 042
     Dates: start: 20200829, end: 20200829
  4. SODIUM CHLORIDE [Suspect]
     Active Substance: SODIUM CHLORIDE
     Dosage: DOSE RE-INTRODUCED, DILUENT FOR CYCLOPHOSPHAMIDE.
     Route: 042
  5. SODIUM CHLORIDE [Suspect]
     Active Substance: SODIUM CHLORIDE
     Dosage: VINCRISTINE SULFATE 2 MG + NS 20 ML
     Route: 042
     Dates: start: 20200829, end: 20200829
  6. SODIUM CHLORIDE [Suspect]
     Active Substance: SODIUM CHLORIDE
     Dosage: DOSE RE-INTRODUCED; DILUENT FOR VINCRISTINE;
     Route: 042
  7. SODIUM CHLORIDE [Suspect]
     Active Substance: SODIUM CHLORIDE
     Dosage: RITUXIMAB 500 MG + NS 500 ML
     Route: 041
     Dates: start: 20200828, end: 20200828
  8. SODIUM CHLORIDE [Suspect]
     Active Substance: SODIUM CHLORIDE
     Dosage: DOSE RE-INTRODUCED; DILUENT FOR RITUXIMAB;
     Route: 041
  9. DEXTROSE [Suspect]
     Active Substance: DEXTROSE
     Indication: Medication dilution
     Dosage: PIRARUBICIN HYDROCHLORIDE 60 MG + 5% GS 80 ML
     Route: 042
     Dates: start: 20200829, end: 20200829
  10. DEXTROSE [Suspect]
     Active Substance: DEXTROSE
     Dosage: DOSE RE-INTRODUCED, DILUENT FOR PIRARUBICIN HYDROCHLORIDE
     Route: 042
  11. PIRARUBICIN HYDROCHLORIDE [Suspect]
     Active Substance: PIRARUBICIN HYDROCHLORIDE
     Indication: Gastrointestinal lymphoma
     Dosage: PIRARUBICIN HYDROCHLORIDE (60MG) + GLUCOSE (80ML)
     Route: 042
     Dates: start: 20200829, end: 20200829
  12. PIRARUBICIN HYDROCHLORIDE [Suspect]
     Active Substance: PIRARUBICIN HYDROCHLORIDE
     Dosage: DOSE RE-INTRODUCED; PIRARUBICIN HYDROCHLORIDE + 5% GS
     Route: 042
  13. VINCRISTINE SULFATE [Suspect]
     Active Substance: VINCRISTINE SULFATE
     Indication: Gastrointestinal lymphoma
     Dosage: VINCRISTINE FOR INJECTION (2MG) + SODIUM CHLORIDE (20ML);
     Route: 042
     Dates: start: 20200829, end: 20200829
  14. VINCRISTINE SULFATE [Suspect]
     Active Substance: VINCRISTINE SULFATE
     Dosage: DOSE RE-INTRODUCED; VINCRISTINE SULFATE + NS
     Route: 042
  15. RITUXIMAB [Suspect]
     Active Substance: RITUXIMAB
     Indication: Gastrointestinal lymphoma
     Dosage: RITUXIMAB (500MG) + SODIUM CHLORIDE (500ML);
     Route: 041
     Dates: start: 20200828, end: 20200828
  16. RITUXIMAB [Suspect]
     Active Substance: RITUXIMAB
     Dosage: DOSE RE-INTRODUCED; RITUXIMAB + NS
     Route: 041

REACTIONS (1)
  - Myelosuppression [Recovering/Resolving]

NARRATIVE: CASE EVENT DATE: 20200907
